FAERS Safety Report 18289373 (Version 1)
Quarter: 2020Q3

REPORT INFORMATION
  Report Type: Spontaneous
  Country: US (occurrence: US)
  Receive Date: 20200921
  Receipt Date: 20200921
  Transmission Date: 20201103
  Serious: No
  Sender: FDA-Public Use
  Company Number: None

PATIENT
  Age: 64 Year
  Sex: Male
  Weight: 153 kg

DRUGS (9)
  1. BASAGLAR [Concomitant]
     Active Substance: INSULIN GLARGINE
  2. METFORMIN [Concomitant]
     Active Substance: METFORMIN HYDROCHLORIDE
  3. ONDANSETRON [Concomitant]
     Active Substance: ONDANSETRON
  4. OMEPRAZOLE. [Concomitant]
     Active Substance: OMEPRAZOLE
  5. EUTHYROX [Suspect]
     Active Substance: LEVOTHYROXINE SODIUM
     Indication: HYPOTHYROIDISM
     Dosage: ?          QUANTITY:1 TABLET(S);?
     Route: 048
  6. NOVOLOG [Concomitant]
     Active Substance: INSULIN ASPART
  7. INDAPAMIDE. [Concomitant]
     Active Substance: INDAPAMIDE
  8. HEPARIN [Concomitant]
     Active Substance: HEPARIN SODIUM
  9. CHEMOTHERAPY (LEUCOVORIN, IRINOTECAN, FLUOROURACIL, BEVACIZUMAB) [Concomitant]

REACTIONS (2)
  - Dyspnoea [None]
  - Myocardial infarction [None]

NARRATIVE: CASE EVENT DATE: 20200801
